FAERS Safety Report 6826486-0 (Version None)
Quarter: 2010Q2

REPORT INFORMATION
  Report Type: 
  Country: None (occurrence: None)
  Receive Date: 20100628
  Receipt Date: 20100331
  Transmission Date: 20101027
  Serious: Yes (Hospitalization)
  Sender: FDA-Public Use
  Company Number: ADR-UNK-065

PATIENT
  Age: 14 Year
  Sex: Female

DRUGS (4)
  1. ZONISAMIDE [Suspect]
     Indication: EPILEPSY
  2. VALPROIC ACID [Concomitant]
  3. PHENOBARBITAL [Concomitant]
  4. RANCEPINE (CARBAMAZEPINE) [Concomitant]

REACTIONS (3)
  - EPILEPSY [None]
  - OVARIAN GRANULOSA-THECA CELL TUMOUR [None]
  - PERITONITIS SCLEROSING [None]
